FAERS Safety Report 24975707 (Version 1)
Quarter: 2025Q1

REPORT INFORMATION
  Report Type: Spontaneous
  Country: US (occurrence: US)
  Receive Date: 20250217
  Receipt Date: 20250217
  Transmission Date: 20250408
  Serious: Yes (Other)
  Sender: NOVO NORDISK
  Company Number: US-NOVOPROD-1368080

PATIENT
  Sex: Male

DRUGS (3)
  1. OZEMPIC [Suspect]
     Active Substance: SEMAGLUTIDE
     Indication: Product used for unknown indication
     Dosage: 0.25 MG, QW
     Route: 058
  2. OZEMPIC [Suspect]
     Active Substance: SEMAGLUTIDE
     Dosage: 0.5 MG, QW
     Route: 058
  3. NovoFine Plus 4mm (32G) [Concomitant]
     Indication: Device therapy
     Route: 058

REACTIONS (7)
  - Chronic kidney disease [Unknown]
  - Condition aggravated [Unknown]
  - Glomerular filtration rate increased [Unknown]
  - Glycosylated haemoglobin increased [Unknown]
  - Muscle spasms [Unknown]
  - Weight loss poor [Unknown]
  - Increased appetite [Unknown]
